FAERS Safety Report 18583862 (Version 2)
Quarter: 2021Q1

REPORT INFORMATION
  Report Type: Spontaneous
  Country: US (occurrence: US)
  Receive Date: 20201207
  Receipt Date: 20210101
  Transmission Date: 20210419
  Serious: No
  Sender: FDA-Public Use
  Company Number: US-ASTRAZENECA-2020SF54046

PATIENT
  Sex: Male

DRUGS (4)
  1. ASPIRIN. [Concomitant]
     Active Substance: ASPIRIN
  2. BYDUREON BCISE [Suspect]
     Active Substance: EXENATIDE
     Dosage: UNKNOWN DOSE AND FREQUENCY
     Route: 065
  3. BYDUREON [Suspect]
     Active Substance: EXENATIDE
     Route: 065
     Dates: start: 20191231
  4. LANTUS [Concomitant]
     Active Substance: INSULIN GLARGINE

REACTIONS (3)
  - Device delivery system issue [Unknown]
  - Injection site haemorrhage [Unknown]
  - Device issue [Unknown]
